FAERS Safety Report 6865786-5 (Version None)
Quarter: 2010Q3

REPORT INFORMATION
  Report Type: 
  Country: None (occurrence: None)
  Receive Date: 20100721
  Receipt Date: 20090916
  Transmission Date: 20110219
  Serious: Yes (Disabling, Other)
  Sender: FDA-Public Use
  Company Number: US-PFIZER INC-2009270492

PATIENT
  Sex: Female
  Weight: 76 kg

DRUGS (3)
  1. PREMPRO [Suspect]
     Indication: HORMONE REPLACEMENT THERAPY
     Dosage: 0.625/2.5 MG
     Dates: start: 19970101, end: 20000101
  2. PREMARIN [Suspect]
     Indication: HORMONE REPLACEMENT THERAPY
     Dosage: 0.9 MG
     Route: 048
     Dates: start: 20011201, end: 20020101
  3. PREMARIN [Suspect]
     Dosage: 0.625 MG
     Dates: start: 20020101

REACTIONS (1)
  - BREAST CANCER IN SITU [None]
